FAERS Safety Report 23065052 (Version 4)
Quarter: 2023Q4

REPORT INFORMATION
  Report Type: Spontaneous
  Country: US (occurrence: US)
  Receive Date: 20231013
  Receipt Date: 20231220
  Transmission Date: 20240110
  Serious: Yes (Hospitalization, Disabling, Other)
  Sender: FDA-Public Use
  Company Number: US-PFIZER INC-202300318416

PATIENT
  Age: 60 Year
  Sex: Female
  Weight: 58.957 kg

DRUGS (5)
  1. PRECEDEX [Interacting]
     Active Substance: DEXMEDETOMIDINE HYDROCHLORIDE
     Indication: Alcohol withdrawal syndrome
     Dosage: 0.8 MG/HR CONTINUOUS INFUSION
     Route: 042
     Dates: start: 20230920, end: 20231004
  2. CLONIDINE [Concomitant]
     Active Substance: CLONIDINE
     Dosage: UNK, DAILY
  3. ZYPREXA [Concomitant]
     Active Substance: OLANZAPINE
     Dosage: UNK UNK, DAILY
     Route: 048
  4. VERSED [Interacting]
     Active Substance: MIDAZOLAM HYDROCHLORIDE
     Dosage: 5 MG (5 MG PER HOUR DRIP)
  5. LIBRIUM [Concomitant]
     Active Substance: CHLORDIAZEPOXIDE HYDROCHLORIDE
     Dosage: DAILY

REACTIONS (6)
  - Memory impairment [Unknown]
  - Weight decreased [Unknown]
  - Off label use [Unknown]
  - Off label use [Unknown]
  - Product use issue [Unknown]
  - Drug interaction [Unknown]

NARRATIVE: CASE EVENT DATE: 20230901
